FAERS Safety Report 9821886 (Version 1)
Quarter: 2014Q1

REPORT INFORMATION
  Report Type: Spontaneous
  Country: US (occurrence: US)
  Receive Date: 20140116
  Receipt Date: 20140116
  Transmission Date: 20141002
  Serious: Yes (Other)
  Sender: FDA-Public Use
  Company Number: US-BAXTER-2014BAX001487

PATIENT
  Age: 59 Year
  Sex: Female

DRUGS (8)
  1. CYTOXAN (CYCLOPHOSPHAMIDE FOR INJECTION, USP) 1 GRAM VIAL (LYOPHILIZE [Suspect]
     Indication: B PRECURSOR TYPE ACUTE LEUKAEMIA
  2. DOXORUBICIN [Suspect]
     Indication: B PRECURSOR TYPE ACUTE LEUKAEMIA
  3. VINCRISTINE [Suspect]
     Indication: B PRECURSOR TYPE ACUTE LEUKAEMIA
  4. PREDNISONE [Suspect]
     Indication: B PRECURSOR TYPE ACUTE LEUKAEMIA
  5. L ASPARAGINASE [Suspect]
     Indication: B PRECURSOR TYPE ACUTE LEUKAEMIA
  6. AMLODIPINE [Concomitant]
  7. ZESTRIL [Concomitant]
  8. WARFARIN [Concomitant]

REACTIONS (1)
  - Cholestasis [Recovered/Resolved]
